FAERS Safety Report 8138682-3 (Version None)
Quarter: 2012Q1

REPORT INFORMATION
  Report Type: 
  Country: None (occurrence: None)
  Receive Date: 20120215
  Receipt Date: 20120203
  Transmission Date: 20120608
  Serious: Yes (Other)
  Sender: FDA-Public Use
  Company Number: IE-ELI_LILLY_AND_COMPANY-IE201202000148

PATIENT
  Sex: Male

DRUGS (6)
  1. LANTUS [Concomitant]
     Dosage: UNK, UNKNOWN
  2. LANTUS [Concomitant]
     Dosage: 1 DF, UNK
  3. NOVORAPID [Concomitant]
     Dosage: UNK, UNKNOWN
  4. CAPRIN [Concomitant]
     Indication: THROMBOSIS
     Dosage: 75 MG, UNK
  5. BYDUREON [Suspect]
     Indication: DIABETES MELLITUS
     Dosage: UNK
     Dates: start: 20111030
  6. NOVORAPID [Concomitant]
     Dosage: 3 DF, UNK

REACTIONS (7)
  - INCORRECT STORAGE OF DRUG [None]
  - LACERATION [None]
  - DYSGEUSIA [None]
  - OFF LABEL USE [None]
  - CEREBROVASCULAR ACCIDENT [None]
  - VENOUS INJURY [None]
  - INJECTION SITE HAEMORRHAGE [None]
